FAERS Safety Report 6783311-4 (Version None)
Quarter: 2010Q2

REPORT INFORMATION
  Report Type: 
  Country: None (occurrence: None)
  Receive Date: 20100622
  Receipt Date: 20100610
  Transmission Date: 20101027
  Serious: Yes (Other)
  Sender: FDA-Public Use
  Company Number: NO-JNJFOC-20100603694

PATIENT

DRUGS (2)
  1. SIMPONI [Suspect]
     Indication: ANKYLOSING SPONDYLITIS
     Route: 058
  2. NSAID [Concomitant]
     Indication: ANKYLOSING SPONDYLITIS

REACTIONS (2)
  - EPISTAXIS [None]
  - PALPITATIONS [None]
